FAERS Safety Report 15271967 (Version 1)
Quarter: 2018Q3

REPORT INFORMATION
  Report Type: Spontaneous
  Country: CA (occurrence: CA)
  Receive Date: 20180813
  Receipt Date: 20180813
  Transmission Date: 20181010
  Serious: Yes (Disabling, Other)
  Sender: FDA-Public Use
  Company Number: CA-BAYER-2018-145851

PATIENT
  Age: 33 Year
  Sex: Female
  Weight: 70.3 kg

DRUGS (1)
  1. MIRENA [Suspect]
     Active Substance: LEVONORGESTREL
     Indication: CONTRACEPTION
     Dosage: 20 MCG/24HR, CONT
     Route: 015

REACTIONS (12)
  - Amnesia [Not Recovered/Not Resolved]
  - Irritability [Not Recovered/Not Resolved]
  - Vaginal haemorrhage [Not Recovered/Not Resolved]
  - Acne [Not Recovered/Not Resolved]
  - Food intolerance [Not Recovered/Not Resolved]
  - Weight increased [Not Recovered/Not Resolved]
  - Insomnia [Not Recovered/Not Resolved]
  - Abdominal pain [Not Recovered/Not Resolved]
  - Alopecia [Not Recovered/Not Resolved]
  - Decreased appetite [Not Recovered/Not Resolved]
  - Thyroid disorder [Not Recovered/Not Resolved]
  - Constipation [Not Recovered/Not Resolved]
